FAERS Safety Report 14835704 (Version 2)
Quarter: 2018Q2

REPORT INFORMATION
  Report Type: Report from Study
  Country: US (occurrence: US)
  Receive Date: 20180502
  Receipt Date: 20180626
  Transmission Date: 20180711
  Serious: Yes (Hospitalization, Other)
  Sender: FDA-Public Use
  Company Number: US-GILEAD-2018-0335171

PATIENT
  Age: 69 Year
  Sex: Female

DRUGS (15)
  1. POTASSIUM [Concomitant]
     Active Substance: POTASSIUM
  2. SILDENAFIL. [Concomitant]
     Active Substance: SILDENAFIL
  3. AMBRISENTAN [Suspect]
     Active Substance: AMBRISENTAN
     Indication: PRODUCT USED FOR UNKNOWN INDICATION
     Dosage: 10 MG, QD
     Route: 065
  4. ZOLOFT [Concomitant]
     Active Substance: SERTRALINE HYDROCHLORIDE
  5. LEVOTHYROXINE. [Concomitant]
     Active Substance: LEVOTHYROXINE
  6. LEVSIN [Concomitant]
     Active Substance: HYOSCYAMINE SULFATE
  7. LASIX [Concomitant]
     Active Substance: FUROSEMIDE
  8. BIOFREEZE                          /00482701/ [Concomitant]
  9. CLONAZEPAM. [Concomitant]
     Active Substance: CLONAZEPAM
  10. MELATONIN [Concomitant]
     Active Substance: MELATONIN
  11. OXYCODONE [Concomitant]
     Active Substance: OXYCODONE
  12. NASONEX [Concomitant]
     Active Substance: MOMETASONE FUROATE
  13. DOCUSATE SODIUM. [Concomitant]
     Active Substance: DOCUSATE SODIUM
  14. ZOFRAN [Concomitant]
     Active Substance: ONDANSETRON HYDROCHLORIDE
  15. TUMS                               /00193601/ [Concomitant]
     Active Substance: CALCIUM CARBONATE\MAGNESIUM CARBONATE\MAGNESIUM TRISILICATE

REACTIONS (3)
  - Cerebrovascular accident [Recovered/Resolved]
  - Intentional dose omission [Recovered/Resolved]
  - Cerebrovascular accident [Unknown]

NARRATIVE: CASE EVENT DATE: 20180610
